FAERS Safety Report 15016794 (Version 1)
Quarter: 2018Q2

REPORT INFORMATION
  Report Type: Report from Study
  Country: IT (occurrence: IT)
  Receive Date: 20180615
  Receipt Date: 20180615
  Transmission Date: 20180711
  Serious: Yes (Other)
  Sender: FDA-Public Use
  Company Number: IT-GILEAD-2018-0343378

PATIENT
  Age: 72 Year
  Sex: Female
  Weight: 35 kg

DRUGS (8)
  1. ALIFLUS [Concomitant]
     Active Substance: FLUTICASONE PROPIONATE\SALMETEROL XINAFOATE
  2. CARDIRENE [Concomitant]
     Active Substance: ASPIRIN DL-LYSINE
  3. SIMESTAT [Concomitant]
     Active Substance: ROSUVASTATIN CALCIUM
  4. PANTORC [Concomitant]
     Active Substance: PANTOPRAZOLE SODIUM
  5. FLUIMUCIL [Concomitant]
     Active Substance: ACETYLCYSTEINE
  6. RANOLAZINE. [Suspect]
     Active Substance: RANOLAZINE
     Indication: PRODUCT USED FOR UNKNOWN INDICATION
     Dosage: 375 MG, BID
     Route: 048
  7. MONOKET [Concomitant]
     Active Substance: ISOSORBIDE MONONITRATE
  8. SPIRIVA [Concomitant]
     Active Substance: TIOTROPIUM BROMIDE MONOHYDRATE

REACTIONS (3)
  - Swollen tongue [Recovering/Resolving]
  - Drug intolerance [Recovering/Resolving]
  - Dizziness [Recovering/Resolving]

NARRATIVE: CASE EVENT DATE: 20180517
